FAERS Safety Report 10128695 (Version 1)
Quarter: 2014Q2

REPORT INFORMATION
  Report Type: Spontaneous
  Country: IN (occurrence: IN)
  Receive Date: 20140428
  Receipt Date: 20140428
  Transmission Date: 20141212
  Serious: Yes (Life-Threatening, Hospitalization)
  Sender: FDA-Public Use
  Company Number: IN-MYLANLABS-2014S1008955

PATIENT
  Age: 26 Year
  Sex: Male

DRUGS (8)
  1. PHENOBARBITAL [Suspect]
     Indication: INTENTIONAL OVERDOSE
     Dosage: DF = TABLET
     Route: 048
  2. PHENOBARBITAL [Suspect]
     Indication: PARTIAL SEIZURES WITH SECONDARY GENERALISATION
     Dosage: DF = TABLET
     Route: 048
  3. PHENOBARBITAL [Suspect]
     Indication: INTENTIONAL OVERDOSE
     Dosage: 60 MG/DAY
     Route: 065
  4. PHENOBARBITAL [Suspect]
     Indication: PARTIAL SEIZURES WITH SECONDARY GENERALISATION
     Dosage: 60 MG/DAY
     Route: 065
  5. PHENYTOIN [Suspect]
     Indication: INTENTIONAL OVERDOSE
     Route: 048
  6. PHENYTOIN [Suspect]
     Indication: PARTIAL SEIZURES WITH SECONDARY GENERALISATION
     Route: 048
  7. PHENYTOIN [Suspect]
     Indication: INTENTIONAL OVERDOSE
     Dosage: 300 MG/DAY
     Route: 065
  8. PHENYTOIN [Suspect]
     Indication: PARTIAL SEIZURES WITH SECONDARY GENERALISATION
     Dosage: 300 MG/DAY
     Route: 065

REACTIONS (6)
  - Intentional overdose [Recovered/Resolved]
  - Toxicity to various agents [Recovered/Resolved]
  - Suicide attempt [Recovered/Resolved]
  - Affective disorder [Recovering/Resolving]
  - Coma [Recovered/Resolved]
  - Rales [Recovered/Resolved]
